FAERS Safety Report 4467585-0 (Version None)
Quarter: 2004Q3

REPORT INFORMATION
  Report Type: 
  Country: None (occurrence: None)
  Receive Date: 20040917
  Receipt Date: 20040520
  Transmission Date: 20050211
  Serious: No
  Sender: FDA-Public Use
  Company Number: US-JNJFOC-20040504450

PATIENT
  Age: 32 Year
  Sex: Female
  Weight: 54.4316 kg

DRUGS (11)
  1. ORTHO EVRA [Suspect]
     Indication: CONTRACEPTION
     Dosage: 1 DOSE(S), 3 IN 4 WEEK, TRANSDERMAL
     Route: 062
     Dates: start: 20040502
  2. TYLENOL #3 (TABLETS) ACETAMINOPHEN/CODEINE [Concomitant]
  3. FLEXERIL (CYCLOBENZAPRINE HYDROCHLORIDE) UNSPECIFIED [Concomitant]
  4. PROVIGEL (MODAFINIL) UNSPECIFIED [Concomitant]
  5. CELEBREX (CELECOXIB) UNSPECIFIED [Concomitant]
  6. RITALIN (METHYLPHENIDATE HYDROCHLORIDE) UNSPECIFIED [Concomitant]
  7. KLONIPIN (CLONAZEPAM) UNSPECIFIED [Concomitant]
  8. LEXAPRO [Concomitant]
  9. ELAVIL (AMITRIPTYLINE HYDROCHLORIDE) TABLETS [Concomitant]
  10. AMBIEN (ZOLIPDEM TARTRATE) [Concomitant]
  11. PROTONIX [Concomitant]

REACTIONS (2)
  - ABDOMINAL PAIN [None]
  - METRORRHAGIA [None]
